FAERS Safety Report 8784339 (Version 1)
Quarter: 2012Q4

REPORT INFORMATION
  Report Type: 
  Country: US (occurrence: US)
  Receive Date: 20120913
  Receipt Date: 20120913
  Transmission Date: 20130627
  Serious: Yes (Other)
  Sender: FDA-Public Use
  Company Number: US-PFIZER INC-2012225414

PATIENT
  Age: 74 Year
  Sex: Male

DRUGS (12)
  1. LYRICA [Suspect]
     Indication: DIABETIC NEUROPATHY
     Dosage: 50 mg, 3x/day
     Route: 048
     Dates: start: 2010, end: 20120911
  2. PHENTERMINE [Concomitant]
     Dosage: 37.5 mg, 1x/day
     Route: 048
  3. ALLOPURINOL [Concomitant]
     Dosage: 300 mg, 1x/day
     Route: 048
  4. FLOVENT DISKUS [Concomitant]
     Dosage: 250 ug, UNK
  5. GEMFIBROZIL [Concomitant]
     Dosage: 600 mg, 2x/day
     Route: 048
  6. GLYBURIDE [Concomitant]
     Dosage: 10 mg, 2x/day
     Route: 048
  7. METFORMIN [Concomitant]
     Dosage: 500 mg, 4x/day
  8. METOPROLOL [Concomitant]
     Dosage: 100 mg, 2x/day
     Route: 048
  9. ONGLYZA [Concomitant]
     Dosage: 5 mg, 1x/day
     Route: 048
  10. ZETIA [Concomitant]
     Dosage: 10 mg, 1x/day
     Route: 048
  11. HYDROCHLOROTHIAZIDE [Concomitant]
     Dosage: 50 mg, 1x/day
     Route: 048
  12. NEXIUM [Concomitant]
     Dosage: 40 mg, 2x/day
     Route: 048

REACTIONS (1)
  - Angioedema [Not Recovered/Not Resolved]
